FAERS Safety Report 11216502 (Version 1)
Quarter: 2015Q2

REPORT INFORMATION
  Report Type: Spontaneous
  Country: US (occurrence: None)
  Receive Date: 20150623
  Receipt Date: 20150623
  Transmission Date: 20150821
  Serious: Yes (Other)
  Sender: FDA-Public Use
  Company Number: None

PATIENT
  Age: 66 Year
  Sex: Female
  Weight: 104.33 kg

DRUGS (13)
  1. ROPINEROLE [Concomitant]
     Active Substance: ROPINIROLE
  2. L-THYROXINE [Concomitant]
     Active Substance: LEVOTHYROXINE
  3. CALCIUM [Concomitant]
     Active Substance: CALCIUM
  4. MAGNESIUM [Concomitant]
     Active Substance: MAGNESIUM
  5. MELATONIN [Concomitant]
     Active Substance: MELATONIN
  6. VAGIFEM [Concomitant]
     Active Substance: ESTRADIOL
  7. ASPIRIN. [Concomitant]
     Active Substance: ASPIRIN
  8. BARIATRIC ADVANTAGE ULTRA-MULTI VITAMIN [Concomitant]
  9. AZELASTINE [Suspect]
     Active Substance: AZELASTINE
     Indication: RHINITIS
     Dosage: TWO SPRAYS 2XDAY TWICE DAILY NASALLY
     Route: 045
     Dates: start: 20150501, end: 20150601
  10. NASONEX [Concomitant]
     Active Substance: MOMETASONE FUROATE
  11. LIOTHYRONINE [Concomitant]
     Active Substance: LIOTHYRONINE
  12. LEVOCETIRIZINE [Concomitant]
     Active Substance: LEVOCETIRIZINE
  13. OMEPRAZOLE. [Concomitant]
     Active Substance: OMEPRAZOLE

REACTIONS (6)
  - Hypoaesthesia eye [None]
  - Hypoaesthesia [None]
  - Hypoaesthesia oral [None]
  - Nausea [None]
  - Feeling abnormal [None]
  - Product taste abnormal [None]

NARRATIVE: CASE EVENT DATE: 20150601
